FAERS Safety Report 5595576-5 (Version None)
Quarter: 2008Q1

REPORT INFORMATION
  Report Type: 
  Country: None (occurrence: None)
  Receive Date: 20080118
  Receipt Date: 20080114
  Transmission Date: 20080703
  Serious: Yes (Other)
  Sender: FDA-Public Use
  Company Number: PHNU2008DE00568

PATIENT
  Age: 63 Year
  Sex: Female

DRUGS (4)
  1. RASILEZ [Suspect]
     Indication: HYPERTENSION
     Dosage: 150 MG/DAY
     Route: 048
     Dates: start: 20071009, end: 20071107
  2. FORZAAR [Concomitant]
  3. EUTHYROX [Concomitant]
  4. EPANUTIN [Concomitant]

REACTIONS (2)
  - ANGINA PECTORIS [None]
  - DYSPHONIA [None]
